FAERS Safety Report 22046000 (Version 1)
Quarter: 2023Q1

REPORT INFORMATION
  Report Type: Spontaneous
  Country: FR (occurrence: FR)
  Receive Date: 20230228
  Receipt Date: 20230228
  Transmission Date: 20230418
  Serious: Yes (Hospitalization)
  Sender: FDA-Public Use
  Company Number: None

PATIENT
  Age: 47 Year
  Sex: Female

DRUGS (4)
  1. LEVOFLOXACIN [Suspect]
     Active Substance: LEVOFLOXACIN
     Indication: Transplant rejection
     Dates: start: 20220706, end: 20220713
  2. CLAFORAN [Suspect]
     Active Substance: CEFOTAXIME SODIUM
     Indication: Transplant rejection
     Dates: start: 20220706, end: 20220713
  3. ATOVAQUONE [Suspect]
     Active Substance: ATOVAQUONE
     Indication: Transplant rejection
     Dates: start: 20220706, end: 20220713
  4. AMBISOME [Suspect]
     Active Substance: AMPHOTERICIN B
     Indication: Transplant rejection
     Dates: start: 20220708, end: 20220713

REACTIONS (1)
  - Rash maculo-papular [Recovered/Resolved]

NARRATIVE: CASE EVENT DATE: 20220712
